FAERS Safety Report 15044573 (Version 2)
Quarter: 2018Q3

REPORT INFORMATION
  Report Type: Spontaneous
  Country: JP (occurrence: JP)
  Receive Date: 20180621
  Receipt Date: 20180730
  Transmission Date: 20181010
  Serious: Yes (Hospitalization, Other)
  Sender: FDA-Public Use
  Company Number: JP-BEH-2018091881

PATIENT
  Age: 11 Month
  Sex: Male
  Weight: 7.83 kg

DRUGS (3)
  1. BAKTAR [Concomitant]
     Active Substance: SULFAMETHOXAZOLE\TRIMETHOPRIM
     Indication: INFECTION PROPHYLAXIS
     Dosage: 0.5 G, BID
     Route: 048
     Dates: start: 20180309
  2. HIZENTRA [Suspect]
     Active Substance: HUMAN IMMUNOGLOBULIN G
     Indication: HYPOGAMMAGLOBULINAEMIA
     Dosage: 2 G, OD
     Route: 058
     Dates: start: 20180608, end: 20180608
  3. HIZENTRA [Suspect]
     Active Substance: HUMAN IMMUNOGLOBULIN G
     Dosage: 2 G, OD
     Route: 058
     Dates: start: 20180507

REACTIONS (4)
  - Vomiting [Recovered/Resolved]
  - Meningitis aseptic [Recovered/Resolved]
  - Meningitis aseptic [Recovered/Resolved]
  - Pyrexia [Recovered/Resolved]

NARRATIVE: CASE EVENT DATE: 20180509
